FAERS Safety Report 5430074-0 (Version None)
Quarter: 2007Q3

REPORT INFORMATION
  Report Type: 
  Country: None (occurrence: None)
  Receive Date: 20070829
  Receipt Date: 20070821
  Transmission Date: 20080115
  Serious: Yes (Other)
  Sender: FDA-Public Use
  Company Number: US-PFIZER INC-2007069441

PATIENT

DRUGS (1)
  1. LYRICA [Suspect]

REACTIONS (1)
  - ERYTHEMA MULTIFORME [None]
